FAERS Safety Report 25766267 (Version 1)
Quarter: 2025Q3

REPORT INFORMATION
  Report Type: Other
  Country: IR (occurrence: IR)
  Receive Date: 20250905
  Receipt Date: 20250905
  Transmission Date: 20251020
  Serious: Yes (Death, Hospitalization, Other)
  Sender: ANI
  Company Number: IR-ANIPHARMA-030445

PATIENT
  Age: 6 Year
  Sex: Female

DRUGS (9)
  1. VANCOMYCIN [Suspect]
     Active Substance: VANCOMYCIN
     Indication: Sepsis
  2. CYCLOPHOSPHAMIDE [Suspect]
     Active Substance: CYCLOPHOSPHAMIDE
     Indication: B-cell type acute leukaemia
  3. METHOTREXATE [Concomitant]
     Active Substance: METHOTREXATE
     Indication: B-cell type acute leukaemia
  4. ASPARAGINASE [Concomitant]
     Active Substance: ASPARAGINASE
     Indication: B-cell type acute leukaemia
  5. VINCRISTINE [Concomitant]
     Active Substance: VINCRISTINE
     Indication: B-cell type acute leukaemia
  6. CYTARABINE [Concomitant]
     Active Substance: CYTARABINE
     Indication: B-cell type acute leukaemia
  7. COTRIMOXAZOLE [Concomitant]
     Active Substance: SULFAMETHOXAZOLE\TRIMETHOPRIM
     Indication: Product used for unknown indication
  8. Immune globulin [Concomitant]
     Indication: Guillain-Barre syndrome
  9. HALOPERIDOL [Concomitant]
     Active Substance: HALOPERIDOL
     Indication: Product used for unknown indication

REACTIONS (12)
  - Drug ineffective [Fatal]
  - Nausea [Unknown]
  - Vomiting [Unknown]
  - Vitamin B1 deficiency [Unknown]
  - Rash [Unknown]
  - Wernicke^s encephalopathy [Recovered/Resolved]
  - Candida infection [Unknown]
  - Metastases to meninges [Fatal]
  - Sepsis [Fatal]
  - Gastrooesophageal reflux disease [Unknown]
  - Gastritis erosive [Unknown]
  - Gastrointestinal disorder [Unknown]
